FAERS Safety Report 14731809 (Version 4)
Quarter: 2019Q1

REPORT INFORMATION
  Report Type: Spontaneous
  Country: US (occurrence: US)
  Receive Date: 20180408
  Receipt Date: 20190308
  Transmission Date: 20190417
  Serious: Yes (Life-Threatening, Hospitalization, Disabling, Other)
  Sender: FDA-Public Use
  Company Number: PHEH2018US013099

PATIENT
  Age: 40 Year
  Sex: Female
  Weight: 51.7 kg

DRUGS (10)
  1. SYNTHROID [Concomitant]
     Active Substance: LEVOTHYROXINE SODIUM
     Dosage: 125 UG, QD
     Route: 048
     Dates: start: 20180412
  2. AMLODIPINE [Concomitant]
     Active Substance: AMLODIPINE BESYLATE
     Indication: PRODUCT USED FOR UNKNOWN INDICATION
     Dosage: 10 MG, QD
     Route: 048
     Dates: start: 20180410
  3. GILENYA [Suspect]
     Active Substance: FINGOLIMOD HYDROCHLORIDE
     Indication: RELAPSING-REMITTING MULTIPLE SCLEROSIS
     Dosage: 0.5 MG, QD
     Route: 048
     Dates: start: 20150826, end: 20180404
  4. ACETAZOLAMIDE. [Concomitant]
     Active Substance: ACETAZOLAMIDE
     Indication: PRODUCT USED FOR UNKNOWN INDICATION
     Dosage: 250 MG, BID
     Route: 048
     Dates: start: 20180410
  5. MYRBETRIQ [Concomitant]
     Active Substance: MIRABEGRON
     Indication: PRODUCT USED FOR UNKNOWN INDICATION
     Dosage: UNK
     Route: 065
  6. LABETALOL [Concomitant]
     Active Substance: LABETALOL\LABETALOL HYDROCHLORIDE
     Indication: PRODUCT USED FOR UNKNOWN INDICATION
     Dosage: UNK
     Route: 065
  7. NORETHINDRONE ACETATE AND ETHINYL ESTRADIOL [Concomitant]
     Active Substance: ETHINYL ESTRADIOL\NORETHINDRONE ACETATE
     Indication: PRODUCT USED FOR UNKNOWN INDICATION
     Dosage: 1 DF, QD
     Route: 048
  8. SYNTHROID [Concomitant]
     Active Substance: LEVOTHYROXINE SODIUM
     Indication: PRODUCT USED FOR UNKNOWN INDICATION
     Dosage: 62.5 UG, QD
     Route: 048
     Dates: start: 20180408
  9. DIOVAN [Concomitant]
     Active Substance: VALSARTAN
     Indication: PRODUCT USED FOR UNKNOWN INDICATION
     Dosage: 80 MG, QD
     Route: 065
  10. AMPYRA [Concomitant]
     Active Substance: DALFAMPRIDINE
     Indication: PRODUCT USED FOR UNKNOWN INDICATION
     Dosage: 10 MG, Q12H
     Route: 048
     Dates: start: 20180311

REACTIONS (28)
  - Headache [Not Recovered/Not Resolved]
  - Dysarthria [Recovered/Resolved]
  - Neck pain [Unknown]
  - Somnolence [Unknown]
  - Decreased appetite [Recovering/Resolving]
  - Urinary tract infection [Recovered/Resolved]
  - Aphasia [Recovered/Resolved]
  - Musculoskeletal stiffness [Unknown]
  - Metastases to meninges [Unknown]
  - Personality change [Unknown]
  - Papilloedema [Unknown]
  - Malaise [Unknown]
  - Demyelination [Unknown]
  - Ophthalmoplegia [Unknown]
  - Multiple sclerosis relapse [Recovered/Resolved]
  - Hallucination, visual [Not Recovered/Not Resolved]
  - Lymphocyte count increased [Unknown]
  - Eye movement disorder [Unknown]
  - Hypersomnia [Unknown]
  - Diplopia [Not Recovered/Not Resolved]
  - Neurocryptococcosis [Recovering/Resolving]
  - CSF pressure increased [Unknown]
  - Vision blurred [Not Recovered/Not Resolved]
  - Encephalitis [Recovering/Resolving]
  - Intracranial pressure increased [Unknown]
  - Asthenia [Unknown]
  - Hallucination, auditory [Not Recovered/Not Resolved]
  - Confusional state [Recovering/Resolving]

NARRATIVE: CASE EVENT DATE: 20180311
